FAERS Safety Report 10866937 (Version 1)
Quarter: 2015Q1

REPORT INFORMATION
  Report Type: Spontaneous
  Country: US (occurrence: None)
  Receive Date: 20150220
  Receipt Date: 20150220
  Transmission Date: 20150721
  Serious: Yes (Hospitalization)
  Sender: FDA-Public Use
  Company Number: None

PATIENT
  Age: 66 Year
  Sex: Male
  Weight: 111 kg

DRUGS (5)
  1. TAXOL [Suspect]
     Active Substance: PACLITAXEL
     Route: 042
  2. 5FU [Concomitant]
     Active Substance: FLUOROURACIL
  3. TAXOL [Concomitant]
     Active Substance: PACLITAXEL
  4. 5 FU [Suspect]
     Active Substance: FLUOROURACIL
     Route: 042
  5. HYDROXUREA [Concomitant]

REACTIONS (1)
  - Febrile neutropenia [None]

NARRATIVE: CASE EVENT DATE: 20150215
